FAERS Safety Report 25927737 (Version 2)
Quarter: 2025Q4

REPORT INFORMATION
  Report Type: Report from Study
  Country: JP (occurrence: JP)
  Receive Date: 20251016
  Receipt Date: 20251111
  Transmission Date: 20260118
  Serious: Yes (Life-Threatening, Hospitalization)
  Sender: AMGEN
  Company Number: JP-BEH-2025221751

PATIENT
  Age: 64 Year
  Sex: Male
  Weight: 63.8 kg

DRUGS (13)
  1. AVACOPAN [Suspect]
     Active Substance: AVACOPAN
     Indication: Microscopic polyangiitis
     Dosage: 30 MG, BID
     Route: 048
     Dates: start: 20230904
  2. PREDNISOLONE [Suspect]
     Active Substance: PREDNISOLONE
     Indication: Microscopic polyangiitis
     Dosage: 5 MILLIGRAM, QD
     Route: 048
     Dates: end: 20240910
  3. PREDNISOLONE [Suspect]
     Active Substance: PREDNISOLONE
     Dosage: 4.5 MILLIGRAM, QD
     Route: 048
     Dates: start: 20240911, end: 20250610
  4. PREDNISOLONE [Suspect]
     Active Substance: PREDNISOLONE
     Dosage: 3 MILLIGRAM, QD
     Route: 048
     Dates: start: 20250611, end: 20250902
  5. PREDNISOLONE [Suspect]
     Active Substance: PREDNISOLONE
     Dosage: 2.5 MILLIGRAM, QD
     Route: 048
     Dates: start: 20250903
  6. RITUXIMAB [Concomitant]
     Active Substance: RITUXIMAB
     Indication: Microscopic polyangiitis
     Dosage: 600 MILLIGRAM
     Route: 040
     Dates: start: 20240313, end: 20240313
  7. RITUXIMAB [Concomitant]
     Active Substance: RITUXIMAB
     Dosage: 600 MILLIGRAM
     Route: 040
     Dates: start: 20240911, end: 20240911
  8. RITUXIMAB [Concomitant]
     Active Substance: RITUXIMAB
     Dosage: 600 MILLIGRAM
     Route: 040
     Dates: start: 20250312, end: 20250312
  9. RITUXIMAB [Concomitant]
     Active Substance: RITUXIMAB
     Dosage: 600 MILLIGRAM
     Route: 040
     Dates: start: 20250903, end: 20250903
  10. SULFAMETHOXAZOLE [Concomitant]
     Active Substance: SULFAMETHOXAZOLE
     Indication: Antifungal prophylaxis
     Dosage: 480 MILLIGRAM, QD
  11. VONOPRAZAN FUMARATE [Concomitant]
     Active Substance: VONOPRAZAN FUMARATE
     Dosage: UNK
     Route: 048
  12. ELDECALCITOL [Concomitant]
     Active Substance: ELDECALCITOL
     Dosage: UNK
     Route: 048
  13. MEROPENEM [Concomitant]
     Active Substance: MEROPENEM
     Dosage: UNK
     Route: 040
     Dates: start: 20250423, end: 20250430

REACTIONS (2)
  - Pyrexia [Recovered/Resolved]
  - Septic shock [Recovered/Resolved]

NARRATIVE: CASE EVENT DATE: 20250423
